FAERS Safety Report 6805468-9 (Version None)
Quarter: 2010Q2

REPORT INFORMATION
  Report Type: 
  Country: None (occurrence: None)
  Receive Date: 20100628
  Receipt Date: 20100628
  Transmission Date: 20101027
  Serious: No
  Sender: FDA-Public Use
  Company Number: None

PATIENT
  Age: 71 Year
  Sex: Female
  Weight: 59.1 kg

DRUGS (6)
  1. CIPROFLOXACIN [Suspect]
     Indication: FUNGAL INFECTION
     Dosage: 500MG BID PO
     Route: 048
     Dates: start: 20100611
  2. CIPROFLOXACIN [Suspect]
     Indication: PARONYCHIA
     Dosage: 500MG BID PO
     Route: 048
     Dates: start: 20100611
  3. CIPROFLOXACIN [Suspect]
     Indication: FUNGAL INFECTION
     Dosage: 500MG BID PO
     Route: 048
     Dates: start: 20100613
  4. CIPROFLOXACIN [Suspect]
     Indication: PARONYCHIA
     Dosage: 500MG BID PO
     Route: 048
     Dates: start: 20100613
  5. LOPRESSOR [Concomitant]
  6. HYDROCHLOROTHIAZIDE [Concomitant]

REACTIONS (2)
  - PHOTOSENSITIVITY REACTION [None]
  - RASH MORBILLIFORM [None]
